FAERS Safety Report 10440872 (Version 1)
Quarter: 2014Q3

REPORT INFORMATION
  Report Type: Spontaneous
  Country: US (occurrence: None)
  Receive Date: 20140908
  Receipt Date: 20140908
  Transmission Date: 20150326
  Serious: Yes (Other)
  Sender: FDA-Public Use
  Company Number: None

PATIENT
  Age: 66 Year
  Sex: Male
  Weight: 86 kg

DRUGS (2)
  1. DABIGATRAN [Suspect]
     Active Substance: DABIGATRAN
     Indication: ATRIAL FIBRILLATION
     Route: 048
     Dates: start: 20120817
  2. ENOXAPARIN [Suspect]
     Active Substance: ENOXAPARIN
     Dosage: 90 MG ?BID?SQ
     Route: 058
     Dates: start: 20120815, end: 20120817

REACTIONS (3)
  - Haematuria [None]
  - Nephrolithiasis [None]
  - Haemorrhage [None]

NARRATIVE: CASE EVENT DATE: 20120817
